FAERS Safety Report 19997529 (Version 2)
Quarter: 2021Q4

REPORT INFORMATION
  Report Type: Spontaneous
  Country: JP (occurrence: JP)
  Receive Date: 20211026
  Receipt Date: 20211101
  Transmission Date: 20220303
  Serious: Yes (Life-Threatening, Other)
  Sender: FDA-Public Use
  Company Number: JP-MH-2021M1073261AA

PATIENT
  Age: 71 Year
  Sex: Female

DRUGS (5)
  1. CARBOPLATIN [Suspect]
     Active Substance: CARBOPLATIN
     Indication: Uterine cancer
     Dosage: 360 MILLIGRAM
     Route: 041
     Dates: start: 20211013
  2. PACLITAXEL [Suspect]
     Active Substance: PACLITAXEL
     Indication: Uterine cancer
     Route: 065
  3. PROCHLORPERAZINE DIMETHANESULFONATE [Suspect]
     Active Substance: PROCHLORPERAZINE DIMETHANESULFONATE
     Indication: Product used for unknown indication
     Dosage: 5 MILLIGRAM, QD
     Route: 042
     Dates: start: 20211013, end: 20211013
  4. POLARAMINE [Suspect]
     Active Substance: DEXCHLORPHENIRAMINE MALEATE
     Indication: Product used for unknown indication
     Dosage: 10 MILLIGRAM, QD
     Route: 042
     Dates: start: 20211013, end: 20211013
  5. FAMOTIDINE [Suspect]
     Active Substance: FAMOTIDINE
     Indication: Product used for unknown indication
     Dosage: 20 MILLIGRAM, QD
     Route: 042
     Dates: start: 20211013, end: 20211013

REACTIONS (1)
  - Anaphylactic shock [Recovering/Resolving]

NARRATIVE: CASE EVENT DATE: 20211013
